FAERS Safety Report 18582817 (Version 1)
Quarter: 2020Q4

REPORT INFORMATION
  Report Type: Report from Study
  Country: IN (occurrence: IN)
  Receive Date: 20201205
  Receipt Date: 20201205
  Transmission Date: 20210114
  Serious: Yes (Death)
  Sender: FDA-Public Use
  Company Number: NVSC2020IN324469

PATIENT
  Age: 32 Year
  Sex: Male

DRUGS (2)
  1. RAFINLAR [Suspect]
     Active Substance: DABRAFENIB
     Indication: MALIGNANT MELANOMA
     Dosage: 150 MG, BID (CAPSULE)
     Route: 048
     Dates: start: 20200603, end: 20201116
  2. MEQSEL [Suspect]
     Active Substance: TRAMETINIB
     Indication: MALIGNANT MELANOMA
     Dosage: 2 MG, QD (TABLET)
     Route: 048
     Dates: start: 20200603, end: 20201116

REACTIONS (1)
  - Death [Fatal]

NARRATIVE: CASE EVENT DATE: 20201117
